FAERS Safety Report 18610774 (Version 1)
Quarter: 2020Q4

REPORT INFORMATION
  Report Type: Spontaneous
  Country: US (occurrence: US)
  Receive Date: 20201211
  Receipt Date: 20201211
  Transmission Date: 20210114
  Serious: No
  Sender: FDA-Public Use
  Company Number: None

PATIENT
  Sex: Female

DRUGS (8)
  1. FLOMAX [Concomitant]
     Active Substance: TAMSULOSIN HYDROCHLORIDE
  2. VITMAN D3 [Concomitant]
  3. GABAPENTIN. [Concomitant]
     Active Substance: GABAPENTIN
  4. NUVIGIL [Concomitant]
     Active Substance: ARMODAFINIL
  5. TOPAXMAX [Concomitant]
  6. DIMETHYL FUM 240MG CAP [Suspect]
     Active Substance: DIMETHYL FUMARATE
     Indication: MULTIPLE SCLEROSIS
     Dosage: 1 CAP BID PO
     Route: 048
     Dates: start: 20201008
  7. TIZANIDINE. [Concomitant]
     Active Substance: TIZANIDINE
  8. DULOXETINE. [Concomitant]
     Active Substance: DULOXETINE

REACTIONS (2)
  - Fatigue [None]
  - Gallbladder operation [None]
